FAERS Safety Report 19979823 (Version 6)
Quarter: 2021Q4

REPORT INFORMATION
  Report Type: Report from Study
  Country: CN (occurrence: None)
  Receive Date: 20211021
  Receipt Date: 20211203
  Transmission Date: 20220304
  Serious: Yes (Hospitalization, Other)
  Sender: FDA-Public Use
  Company Number: CN-ROCHE-2893467

PATIENT
  Age: 65 Year
  Sex: Male
  Weight: 57.2 kg

DRUGS (31)
  1. ATEZOLIZUMAB [Suspect]
     Active Substance: ATEZOLIZUMAB
     Indication: Small cell lung cancer extensive stage
     Dosage: DATE OF MOST RECENT DOSE PRIOR TO SAE:20/JUL/2021
     Route: 041
     Dates: start: 20210607, end: 20210927
  2. ATEZOLIZUMAB [Suspect]
     Active Substance: ATEZOLIZUMAB
     Route: 041
     Dates: start: 20211003, end: 20211003
  3. CARBOPLATIN [Suspect]
     Active Substance: CARBOPLATIN
     Indication: Small cell lung cancer extensive stage
     Dosage: DATE OF MOST RECENT DOSE PRIOR TO SAE:20/JUL/2021
     Route: 042
     Dates: start: 20210607
  4. CARBOPLATIN [Suspect]
     Active Substance: CARBOPLATIN
     Dosage: DATE OF MOST RECENT DOSE PRIOR TO SAE:20/JUL/2021
     Route: 041
     Dates: start: 20210614, end: 20210817
  5. CARBOPLATIN [Suspect]
     Active Substance: CARBOPLATIN
     Dosage: MOST RECENT DOSE: 07/SEP/2021
     Route: 041
  6. ETOPOSIDE [Suspect]
     Active Substance: ETOPOSIDE
     Indication: Small cell lung cancer extensive stage
     Dosage: DATE OF MOST RECENT DOSE PRIOR TO SAE:22/JUL/2021 AND 09/SEP/2021
     Route: 041
     Dates: start: 20210607
  7. ETOPOSIDE [Suspect]
     Active Substance: ETOPOSIDE
     Route: 041
     Dates: start: 20210614, end: 20210817
  8. ETOPOSIDE [Suspect]
     Active Substance: ETOPOSIDE
     Route: 041
  9. CISATRACURIUM [Concomitant]
     Active Substance: CISATRACURIUM
     Dates: start: 20211016, end: 20211016
  10. FLURBIPROFEN AXETIL [Concomitant]
     Active Substance: FLURBIPROFEN AXETIL
     Dates: start: 20211016, end: 20211016
  11. DEXMEDETOMIDINE HYDROCHLORIDE [Concomitant]
     Active Substance: DEXMEDETOMIDINE HYDROCHLORIDE
     Dates: start: 20211016, end: 20211016
  12. POLYETHYLENE GLYCOL ELECTROLYTES [Concomitant]
     Dates: start: 20211014, end: 20211014
  13. DI YU SHENG BAI [Concomitant]
     Route: 048
     Dates: start: 20210722
  14. SHENG XUE XIAO BAN [Concomitant]
     Route: 048
     Dates: start: 20210722, end: 20211008
  15. SHENG XUE XIAO BAN [Concomitant]
     Route: 048
     Dates: start: 20211009
  16. PREDNISONE ACETATE [Concomitant]
     Active Substance: PREDNISONE ACETATE
     Dates: start: 20210907, end: 20210917
  17. PREDNISONE ACETATE [Concomitant]
     Active Substance: PREDNISONE ACETATE
     Dates: start: 20210918, end: 20210927
  18. PREDNISONE ACETATE [Concomitant]
     Active Substance: PREDNISONE ACETATE
     Dates: start: 20210826, end: 20210901
  19. LORATADINE [Concomitant]
     Active Substance: LORATADINE
     Route: 048
     Dates: start: 20210821, end: 20210905
  20. EBASTINE [Concomitant]
     Active Substance: EBASTINE
     Route: 048
     Dates: start: 20210825, end: 20210905
  21. HERBALS\DIAMMONIUM GLYCYRRHIZINATE [Concomitant]
     Active Substance: HERBALS\DIAMMONIUM GLYCYRRHIZINATE
     Dates: start: 20211001, end: 202110
  22. SODIUM CHLORIDE [Concomitant]
     Active Substance: SODIUM CHLORIDE
     Dates: start: 20211015, end: 20211015
  23. SODIUM CHLORIDE [Concomitant]
     Active Substance: SODIUM CHLORIDE
     Dates: start: 20211018, end: 20211030
  24. SODIUM CHLORIDE [Concomitant]
     Active Substance: SODIUM CHLORIDE
     Dates: start: 20211020, end: 20211022
  25. SODIUM CHLORIDE [Concomitant]
     Active Substance: SODIUM CHLORIDE
     Dates: start: 20211023, end: 20211029
  26. HUMAN PLASMA [Concomitant]
     Active Substance: HUMAN PLASMA
  27. ACETYLCYSTEINE [Concomitant]
     Active Substance: ACETYLCYSTEINE
     Dates: start: 20211017, end: 20211017
  28. AMBROXOL HYDROCHLORIDE [Concomitant]
     Active Substance: AMBROXOL HYDROCHLORIDE
     Dates: start: 20211017, end: 20211017
  29. AMBROXOL HYDROCHLORIDE [Concomitant]
     Active Substance: AMBROXOL HYDROCHLORIDE
     Dates: start: 20211025, end: 20211025
  30. HUMAN RED BLOOD CELL [Concomitant]
     Active Substance: HUMAN RED BLOOD CELL
     Dates: start: 20211016, end: 20211016
  31. METOCLOPRAMIDE HYDROCHLORIDE [Concomitant]
     Active Substance: METOCLOPRAMIDE HYDROCHLORIDE
     Dates: start: 20211015, end: 20211015

REACTIONS (4)
  - Intestinal obstruction [Recovered/Resolved]
  - Peritonitis [Recovering/Resolving]
  - Hepatic function abnormal [Recovered/Resolved]
  - Platelet count decreased [Recovered/Resolved]

NARRATIVE: CASE EVENT DATE: 20210816
